FAERS Safety Report 9663486 (Version 1)
Quarter: 2013Q4

REPORT INFORMATION
  Report Type: Spontaneous
  Country: AR (occurrence: AR)
  Receive Date: 20131101
  Receipt Date: 20131101
  Transmission Date: 20140711
  Serious: Yes (Hospitalization, Other)
  Sender: FDA-Public Use
  Company Number: AR-AMGEN-ARGSP2013076534

PATIENT
  Sex: Female

DRUGS (1)
  1. ENBREL [Suspect]
     Indication: RHEUMATOID ARTHRITIS
     Dosage: 50 MG, WEEKLY
     Route: 065
     Dates: start: 20130525, end: 2013

REACTIONS (7)
  - Femur fracture [Recovering/Resolving]
  - Osteoarthritis [Recovering/Resolving]
  - Arthropathy [Recovering/Resolving]
  - Lower limb fracture [Recovering/Resolving]
  - Pruritus [Not Recovered/Not Resolved]
  - Alopecia [Unknown]
  - Injection site erythema [Not Recovered/Not Resolved]
